FAERS Safety Report 10239874 (Version 2)
Quarter: 2014Q2

REPORT INFORMATION
  Report Type: Spontaneous
  Country: US (occurrence: US)
  Receive Date: 20140616
  Receipt Date: 20140618
  Transmission Date: 20141212
  Serious: Yes (Hospitalization, Other)
  Sender: FDA-Public Use
  Company Number: US-GILEAD-2014-0105386

PATIENT
  Age: 74 Year
  Sex: Female

DRUGS (1)
  1. LETAIRIS [Suspect]
     Dosage: 5 MG, UNK
     Route: 065
     Dates: start: 20130329

REACTIONS (5)
  - Oophorectomy [Unknown]
  - Pyrexia [Unknown]
  - Infection [Unknown]
  - Abdominal pain [Unknown]
  - Swelling [Not Recovered/Not Resolved]
